FAERS Safety Report 6534963-5 (Version None)
Quarter: 2010Q1

REPORT INFORMATION
  Report Type: 
  Country: None (occurrence: None)
  Receive Date: 20100112
  Receipt Date: 20100107
  Transmission Date: 20100710
  Serious: Yes (Death)
  Sender: FDA-Public Use
  Company Number: US-GILEAD-2010-0026353

PATIENT
  Sex: Female
  Weight: 104.87 kg

DRUGS (18)
  1. LETAIRIS [Suspect]
     Indication: PULMONARY ARTERIAL HYPERTENSION
     Route: 048
     Dates: start: 20090112
  2. ASPIRIN [Concomitant]
  3. LASIX [Concomitant]
  4. PRINIVIL [Concomitant]
  5. PREDNISONE [Concomitant]
  6. AMOXICILLIN [Concomitant]
  7. POTASSIUM CHLORIDE [Concomitant]
  8. MILK OF MAGNESIA TAB [Concomitant]
  9. NOVOLIN 70/30 [Concomitant]
  10. AMARYL [Concomitant]
  11. NEURONTIN [Concomitant]
  12. RESTORIL [Concomitant]
  13. GLUCOPHAGE [Concomitant]
  14. NEXIUM [Concomitant]
  15. FISH OIL [Concomitant]
  16. VITAMIN B6 [Concomitant]
  17. VITAMIN E [Concomitant]
  18. VITAMIN E [Concomitant]

REACTIONS (1)
  - DEATH [None]
